FAERS Safety Report 12889756 (Version 3)
Quarter: 2016Q4

REPORT INFORMATION
  Report Type: Spontaneous
  Country: US (occurrence: US)
  Receive Date: 20161027
  Receipt Date: 20161208
  Transmission Date: 20170207
  Serious: Yes (Hospitalization, Disabling)
  Sender: FDA-Public Use
  Company Number: US-SA-2016SA193046

PATIENT
  Age: 52 Year
  Sex: Female
  Weight: 37.19 kg

DRUGS (7)
  1. AUBAGIO [Suspect]
     Active Substance: TERIFLUNOMIDE
     Indication: RELAPSING-REMITTING MULTIPLE SCLEROSIS
     Route: 048
     Dates: start: 20160416, end: 20160714
  2. PREDNISONE. [Concomitant]
     Active Substance: PREDNISONE
  3. MARIJUANA [Concomitant]
     Active Substance: CANNABIS SATIVA SUBSP. INDICA TOP
     Indication: PAIN
  4. CHOLESTYRAMINE. [Concomitant]
     Active Substance: CHOLESTYRAMINE
     Dosage: 4GM PACKET-2 PACKETS; 3X DAILY?REASON FOR USE: ACCELERATED TERIFLUNOMIDE USE
     Dates: start: 20160804, end: 20160815
  5. MARIJUANA [Concomitant]
     Active Substance: CANNABIS SATIVA SUBSP. INDICA TOP
     Indication: MUSCLE SPASMS
  6. AUBAGIO [Suspect]
     Active Substance: TERIFLUNOMIDE
     Indication: RELAPSING-REMITTING MULTIPLE SCLEROSIS
     Route: 065
     Dates: end: 201608
  7. MARIJUANA [Concomitant]
     Active Substance: CANNABIS SATIVA SUBSP. INDICA TOP
     Indication: SLEEP DISORDER

REACTIONS (8)
  - Multiple sclerosis [Not Recovered/Not Resolved]
  - Diplegia [Recovering/Resolving]
  - Multiple sclerosis relapse [Recovering/Resolving]
  - Weight decreased [Unknown]
  - Incontinence [Recovering/Resolving]
  - Swelling [Unknown]
  - General physical health deterioration [Unknown]
  - Diarrhoea [Unknown]

NARRATIVE: CASE EVENT DATE: 20160824
